FAERS Safety Report 18155216 (Version 1)
Quarter: 2020Q3

REPORT INFORMATION
  Report Type: Spontaneous
  Country: US (occurrence: US)
  Receive Date: 20200817
  Receipt Date: 20200817
  Transmission Date: 20201103
  Serious: No
  Sender: FDA-Public Use
  Company Number: US-ALLERGAN-2014728US

PATIENT
  Age: 49 Year
  Sex: Male

DRUGS (3)
  1. ANDRODERM [Suspect]
     Active Substance: TESTOSTERONE
     Dosage: UNK UNK, QD
     Dates: start: 20200310
  2. ALLOPURINOL. [Concomitant]
     Active Substance: ALLOPURINOL
     Indication: GOUT
     Dosage: 300 MG
     Dates: start: 20200310
  3. ANDRODERM [Suspect]
     Active Substance: TESTOSTERONE
     Indication: PRIMARY HYPOGONADISM
     Dosage: UNK UNK, QD

REACTIONS (5)
  - Injection site urticaria [Not Recovered/Not Resolved]
  - Application site erythema [Not Recovered/Not Resolved]
  - Application site swelling [Not Recovered/Not Resolved]
  - Application site pruritus [Not Recovered/Not Resolved]
  - Skin hypertrophy [Not Recovered/Not Resolved]

NARRATIVE: CASE EVENT DATE: 202003
